FAERS Safety Report 26053532 (Version 2)
Quarter: 2025Q4

REPORT INFORMATION
  Report Type: Spontaneous
  Country: US (occurrence: US)
  Receive Date: 20251117
  Receipt Date: 20251202
  Transmission Date: 20260117
  Serious: Yes (Other)
  Sender: VERTEX
  Company Number: US-VERTEX PHARMACEUTICALS-2025-019036

PATIENT
  Age: 5 Year
  Sex: Female

DRUGS (1)
  1. TRIKAFTA [Suspect]
     Active Substance: ELEXACAFTOR\IVACAFTOR\TEZACAFTOR
     Indication: Cystic fibrosis
     Dosage: UNKNOWN DOSAGE REGIMEN

REACTIONS (6)
  - Sinus operation [Unknown]
  - Psychological trauma [Unknown]
  - Mental impairment [Unknown]
  - Anhedonia [Unknown]
  - Crying [Unknown]
  - Social avoidant behaviour [Unknown]

NARRATIVE: CASE EVENT DATE: 20250101
